FAERS Safety Report 8828773 (Version 3)
Quarter: 2012Q4

REPORT INFORMATION
  Report Type: 
  Country: DK (occurrence: AU)
  Receive Date: 20121008
  Receipt Date: 20121116
  Transmission Date: 20130627
  Serious: Yes (Hospitalization)
  Sender: FDA-Public Use
  Company Number: AU-FRI-1000039272

PATIENT
  Age: 86 Year
  Sex: Female

DRUGS (10)
  1. LEXAPRO [Suspect]
     Dosage: 5 mg
     Route: 048
     Dates: start: 20111018, end: 20111106
  2. LEXAPRO [Suspect]
     Dosage: 20 mg
     Dates: start: 20111107, end: 20111111
  3. LEXAPRO [Suspect]
     Dosage: Extra tablets-dose, quantity unknown
     Route: 048
  4. IRBESARTEN [Concomitant]
     Dosage: 300 mg
  5. IRBESARTEN [Concomitant]
     Dosage: 75 mg
  6. FUROSEMIDE [Concomitant]
  7. GLUCOSAMINE [Concomitant]
  8. SPIRONOLACTONE [Concomitant]
  9. MAGNESIUM CARBONATE [Concomitant]
  10. DABIGATRAN [Concomitant]

REACTIONS (10)
  - Psychotic disorder [Recovered/Resolved]
  - Joint swelling [Unknown]
  - Dyspnoea [Unknown]
  - Anxiety [Recovered/Resolved]
  - Cognitive disorder [Recovered/Resolved]
  - Confusional state [Recovered/Resolved]
  - Hyponatraemia [Recovered/Resolved]
  - Tremor [Recovered/Resolved]
  - Nausea [Unknown]
  - Overdose [Recovered/Resolved]
